FAERS Safety Report 16904903 (Version 1)
Quarter: 2019Q4

REPORT INFORMATION
  Report Type: Spontaneous
  Country: CA (occurrence: CA)
  Receive Date: 20191010
  Receipt Date: 20191010
  Transmission Date: 20200122
  Serious: Yes (Other)
  Sender: FDA-Public Use
  Company Number: CA-GLAXOSMITHKLINE-CA2019AMR181552

PATIENT
  Sex: Male

DRUGS (2)
  1. VOLTAREN EMULGEL [Suspect]
     Active Substance: DICLOFENAC DIETHYLAMINE
     Indication: PAIN IN EXTREMITY
  2. VOLTAREN EMULGEL [Suspect]
     Active Substance: DICLOFENAC DIETHYLAMINE
     Indication: BACK PAIN
     Dosage: UNK

REACTIONS (5)
  - Eye operation [Unknown]
  - Cauda equina syndrome [Unknown]
  - Neoplasm malignant [Recovered/Resolved]
  - Intracranial mass [Unknown]
  - Intervertebral disc protrusion [Unknown]
